FAERS Safety Report 8001225-9 (Version None)
Quarter: 2011Q4

REPORT INFORMATION
  Report Type: 
  Country: None (occurrence: None)
  Receive Date: 20111222
  Receipt Date: 20111215
  Transmission Date: 20120403
  Serious: No
  Sender: FDA-Public Use
  Company Number: US-B.I. PHARMACEUTICALS,INC./RIDGEFIELD-2011-BP-28197BP

PATIENT
  Age: 75 Year
  Sex: Male

DRUGS (8)
  1. DIOVAN [Concomitant]
     Dosage: 320 MG
     Route: 048
  2. LIPITOR [Concomitant]
     Indication: BLOOD CHOLESTEROL INCREASED
     Dosage: 80 MG
     Route: 048
  3. LISINOPRIL [Concomitant]
     Indication: HYPERTENSION
     Dosage: 40 MG
     Route: 048
  4. PRADAXA [Suspect]
     Dosage: 300 MG
     Route: 048
     Dates: end: 20111201
  5. AMLODIPINE [Concomitant]
     Dosage: 5 MG
     Route: 048
  6. PLAVIX [Concomitant]
     Dosage: 75 MG
     Route: 048
  7. LEVITRA [Concomitant]
     Indication: ERECTILE DYSFUNCTION
     Route: 048
  8. HYDROCHLOROTHIAZIDE [Concomitant]
     Indication: HYPERTENSION
     Dosage: 25 MG
     Route: 048

REACTIONS (4)
  - VISION BLURRED [None]
  - OEDEMA PERIPHERAL [None]
  - HEADACHE [None]
  - PULMONARY CONGESTION [None]
